FAERS Safety Report 5369331-5 (Version None)
Quarter: 2007Q2

REPORT INFORMATION
  Report Type: 
  Country: None (occurrence: None)
  Receive Date: 20070620
  Receipt Date: 20070607
  Transmission Date: 20071010
  Serious: Yes (Hospitalization)
  Sender: FDA-Public Use
  Company Number: 2007-01163

PATIENT
  Age: 56 Year
  Sex: Female
  Weight: 55 kg

DRUGS (5)
  1. VELCADE [Suspect]
     Indication: NON-HODGKIN'S LYMPHOMA
     Dosage: 2.50 MG, UNK, INTRAVENOUS
     Route: 042
     Dates: start: 20070412, end: 20070412
  2. LASIX [Concomitant]
  3. ALLOPURINOL [Concomitant]
  4. BACTRIM DS [Concomitant]
  5. LANSOX (LANSOPRAZOLE) [Concomitant]

REACTIONS (3)
  - ABDOMINAL DISTENSION [None]
  - ABDOMINAL PAIN [None]
  - CONSTIPATION [None]
